FAERS Safety Report 7035471-8 (Version None)
Quarter: 2010Q4

REPORT INFORMATION
  Report Type: 
  Country: None (occurrence: None)
  Receive Date: 20101008
  Receipt Date: 20100927
  Transmission Date: 20110411
  Serious: Yes (Other)
  Sender: FDA-Public Use
  Company Number: US-PFIZER INC-2010122499

PATIENT
  Sex: Male

DRUGS (3)
  1. ZOLOFT [Suspect]
     Indication: ANXIETY
     Dosage: 50 MG, 1X/DAY
     Route: 048
     Dates: start: 20100905, end: 20100914
  2. ZOLOFT [Suspect]
     Indication: DEPRESSION
  3. CYMBALTA [Concomitant]
     Dosage: 60 MG, UNK

REACTIONS (6)
  - AGITATION [None]
  - ANXIETY [None]
  - CONFUSIONAL STATE [None]
  - CRYING [None]
  - FEELING OF DESPAIR [None]
  - RESTLESSNESS [None]
